FAERS Safety Report 6067067-9 (Version None)
Quarter: 2009Q1

REPORT INFORMATION
  Report Type: 
  Country: None (occurrence: None)
  Receive Date: 20090205
  Receipt Date: 20080429
  Transmission Date: 20090719
  Serious: Yes (Other)
  Sender: FDA-Public Use
  Company Number: US-MERCK-0804USA06368

PATIENT
  Age: 13 Year
  Sex: Male

DRUGS (2)
  1. SINGULAIR [Suspect]
     Indication: ASTHMA
     Route: 048
     Dates: start: 20080101, end: 20080101
  2. SINGULAIR [Suspect]
     Route: 048
     Dates: end: 20080101

REACTIONS (3)
  - ASTHMA [None]
  - HOMICIDAL IDEATION [None]
  - SUICIDAL IDEATION [None]
